FAERS Safety Report 24108015 (Version 4)
Quarter: 2024Q3

REPORT INFORMATION
  Report Type: Report from Study
  Country: US (occurrence: US)
  Receive Date: 20240718
  Receipt Date: 20240905
  Transmission Date: 20241016
  Serious: Yes (Other)
  Sender: BIOGEN
  Company Number: US-BIOGEN-2024BI01273919

PATIENT
  Age: 36 Year
  Sex: Female

DRUGS (1)
  1. TYSABRI [Suspect]
     Active Substance: NATALIZUMAB
     Indication: Multiple sclerosis
     Route: 050
     Dates: start: 20240701

REACTIONS (6)
  - Seizure [Unknown]
  - Multiple sclerosis relapse [Not Recovered/Not Resolved]
  - Pain [Unknown]
  - Product preparation error [Recovered/Resolved]
  - Vomiting [Unknown]
  - Anxiety [Unknown]

NARRATIVE: CASE EVENT DATE: 20240701
